FAERS Safety Report 6892851-9 (Version None)
Quarter: 2010Q3

REPORT INFORMATION
  Report Type: 
  Country: None (occurrence: None)
  Receive Date: 20100731
  Receipt Date: 20081021
  Transmission Date: 20110219
  Serious: No
  Sender: FDA-Public Use
  Company Number: US-PFIZER INC-2008091024

PATIENT
  Sex: Female
  Weight: 84.09 kg

DRUGS (4)
  1. NORVASC [Suspect]
     Dates: start: 20081021, end: 20081021
  2. PROPAFENONE [Concomitant]
  3. LEVOTHYROXINE SODIUM [Concomitant]
  4. OPHTHALMOLOGICALS [Concomitant]
     Route: 047

REACTIONS (4)
  - DIZZINESS [None]
  - INTENTIONAL DRUG MISUSE [None]
  - NAUSEA [None]
  - NERVOUSNESS [None]
